FAERS Safety Report 6704724-2 (Version None)
Quarter: 2010Q2

REPORT INFORMATION
  Report Type: 
  Country: None (occurrence: None)
  Receive Date: 20100430
  Receipt Date: 20100429
  Transmission Date: 20101027
  Serious: Yes (Hospitalization, Disabling, Other)
  Sender: FDA-Public Use
  Company Number: BR-ABBOTT-09P-020-0611751-00

PATIENT
  Sex: Female
  Weight: 66 kg

DRUGS (3)
  1. HUMIRA [Suspect]
     Indication: RHEUMATOID ARTHRITIS
     Route: 058
     Dates: start: 20080401, end: 20090401
  2. METHOTREXATE [Concomitant]
     Indication: RHEUMATOID ARTHRITIS
     Dosage: 5 PER WEEK
     Route: 048
     Dates: start: 20090401
  3. UNKNOWN MEDICATION [Concomitant]
     Indication: RHEUMATOID ARTHRITIS

REACTIONS (22)
  - ABASIA [None]
  - ANAEMIA [None]
  - APHTHOUS STOMATITIS [None]
  - ASTHENIA [None]
  - BACTERIAL INFECTION [None]
  - BLINDNESS UNILATERAL [None]
  - CATARACT [None]
  - DIET REFUSAL [None]
  - FOOT DEFORMITY [None]
  - HEPATIC LESION [None]
  - IMMUNODEFICIENCY [None]
  - INFECTION [None]
  - NAUSEA [None]
  - NODULE [None]
  - OCULAR NEOPLASM [None]
  - OEDEMA PERIPHERAL [None]
  - OSTEOPENIA [None]
  - PYREXIA [None]
  - RENAL NEOPLASM [None]
  - TOOTH DISORDER [None]
  - VISUAL IMPAIRMENT [None]
  - WEIGHT DECREASED [None]
